FAERS Safety Report 5321573-0 (Version None)
Quarter: 2007Q1

REPORT INFORMATION
  Report Type: 
  Country: None (occurrence: None)
  Receive Date: 20070220
  Receipt Date: 20061228
  Transmission Date: 20070707
  Serious: No
  Sender: FDA-Public Use
  Company Number: TPA2007A00064

PATIENT
  Sex: Female

DRUGS (3)
  1. ROZEREM [Suspect]
     Dosage: PER ORAL
     Route: 048
  2. ATIVAN [Suspect]
  3. XANAX [Suspect]

REACTIONS (1)
  - VOMITING [None]
